FAERS Safety Report 6213285-6 (Version None)
Quarter: 2009Q2

REPORT INFORMATION
  Report Type: 
  Country: None (occurrence: None)
  Receive Date: 20090603
  Receipt Date: 20090521
  Transmission Date: 20091009
  Serious: Yes (Death)
  Sender: FDA-Public Use
  Company Number: US-JNJCH-2009014728

PATIENT

DRUGS (2)
  1. ASPIRIN [Suspect]
     Indication: CORONARY ARTERY DISEASE
     Dosage: TEXT:UNSPECIFIED
     Route: 065
  2. CLOPIDOGREL [Suspect]
     Indication: CORONARY ARTERY DISEASE
     Dosage: TEXT:300 MG, THEN 75 MG DAILY
     Route: 065

REACTIONS (1)
  - HAEMORRHAGE [None]
